FAERS Safety Report 23771172 (Version 1)
Quarter: 2024Q2

REPORT INFORMATION
  Report Type: Spontaneous
  Country: US (occurrence: US)
  Receive Date: 20240423
  Receipt Date: 20240423
  Transmission Date: 20240716
  Serious: No
  Sender: FDA-Public Use
  Company Number: US-Accord-363112

PATIENT
  Age: 57 Year
  Sex: Female
  Weight: 120.2 kg

DRUGS (4)
  1. SIMVASTATIN [Suspect]
     Active Substance: SIMVASTATIN
     Indication: Blood triglycerides increased
  2. MOTRIN [Concomitant]
     Active Substance: IBUPROFEN
     Dosage: SOMETIMES TWICE A DAY, 600MG
  3. ASPIRIN [Concomitant]
     Active Substance: ASPIRIN
  4. LASIX [Concomitant]
     Active Substance: FUROSEMIDE

REACTIONS (6)
  - Peripheral swelling [Recovering/Resolving]
  - Panic attack [Recovering/Resolving]
  - Rash macular [Recovering/Resolving]
  - Joint swelling [Recovering/Resolving]
  - Wrong technique in product usage process [Unknown]
  - Recalled product administered [Unknown]

NARRATIVE: CASE EVENT DATE: 20221001
